FAERS Safety Report 8410710-7 (Version None)
Quarter: 2012Q2

REPORT INFORMATION
  Report Type: 
  Country: None (occurrence: None)
  Receive Date: 20120605
  Receipt Date: 20120524
  Transmission Date: 20120825
  Serious: Yes (Hospitalization, Other)
  Sender: FDA-Public Use
  Company Number: US-ELI_LILLY_AND_COMPANY-US201108007727

PATIENT
  Sex: Female

DRUGS (15)
  1. MULTIVITAMIN [Concomitant]
     Dosage: UNK, BID
  2. FORTEO [Suspect]
     Dosage: 20 UG, QD
  3. FORTEO [Suspect]
     Dosage: 20 UG, QD
  4. PREDNISONE [Concomitant]
     Indication: INFLAMMATION
     Dosage: 10 MG, UNK
     Dates: end: 20111201
  5. ECHINACEA                          /01323501/ [Concomitant]
     Dosage: UNK, PRN
  6. OMEPRAZOLE [Concomitant]
     Dosage: 20 MG, BID
  7. HYDROCODONE [Concomitant]
     Indication: PAIN
     Dosage: 5/500 DAILY
  8. LEVAQUIN [Concomitant]
     Dosage: 500 MG, UNK
  9. FORTEO [Suspect]
     Dosage: 20 UG, QD
     Route: 065
  10. MULTI-VITAMINS [Concomitant]
     Dosage: UNK, PRN
  11. ALLEGRA [Concomitant]
  12. FORTEO [Suspect]
     Dosage: 20 UG, QD
     Route: 065
  13. VITAMIN D [Concomitant]
     Dosage: 1000 U, UNK
  14. FORTEO [Suspect]
     Indication: OSTEOPOROSIS
     Dosage: 20 UG, QD
     Route: 065
     Dates: start: 20110728
  15. TEMAZEPAM [Concomitant]
     Dosage: 15 MG, UNK

REACTIONS (11)
  - LUMBAR VERTEBRAL FRACTURE [None]
  - RENAL FAILURE ACUTE [None]
  - DYSSTASIA [None]
  - URINARY TRACT INFECTION [None]
  - BACK INJURY [None]
  - PARAESTHESIA [None]
  - ASTHENIA [None]
  - FALL [None]
  - INFLAMMATION [None]
  - PAIN [None]
  - MUSCLE SPASMS [None]
